FAERS Safety Report 12008155 (Version 1)
Quarter: 2016Q1

REPORT INFORMATION
  Report Type: Report from Study
  Country: US (occurrence: US)
  Receive Date: 20160205
  Receipt Date: 20160205
  Transmission Date: 20160526
  Serious: No
  Sender: FDA-Public Use
  Company Number: US-ABBVIE-15K-163-1443465-00

PATIENT
  Sex: Female

DRUGS (1)
  1. HUMIRA [Suspect]
     Active Substance: ADALIMUMAB
     Indication: CROHN^S DISEASE
     Route: 065
     Dates: end: 20150805

REACTIONS (6)
  - Injection site pruritus [Recovered/Resolved]
  - Diarrhoea [Not Recovered/Not Resolved]
  - Dental care [Unknown]
  - Pyrexia [Not Recovered/Not Resolved]
  - Injection site erythema [Recovered/Resolved]
  - Infection [Unknown]
